FAERS Safety Report 11370321 (Version 5)
Quarter: 2016Q3

REPORT INFORMATION
  Report Type: Spontaneous
  Country: US (occurrence: US)
  Receive Date: 20150812
  Receipt Date: 20160823
  Transmission Date: 20161109
  Serious: Yes (Other)
  Sender: FDA-Public Use
  Company Number: US-ASTRAZENECA-2015SE17167

PATIENT
  Age: 528 Month
  Sex: Male
  Weight: 90.7 kg

DRUGS (35)
  1. CRESTOR [Suspect]
     Active Substance: ROSUVASTATIN CALCIUM
     Indication: BLOOD CHOLESTEROL INCREASED
     Dosage: 40 MG AT NIGHT
     Route: 048
     Dates: start: 20130430
  2. NAPROXEN SODIUM. [Concomitant]
     Active Substance: NAPROXEN SODIUM
     Dosage: 550.0MG UNKNOWN
     Dates: start: 20120925
  3. AVONEX [Concomitant]
     Active Substance: INTERFERON BETA-1A
     Dosage: 30.0UG UNKNOWN
     Dates: start: 2014
  4. AZITHROMYCIN ANHYDROUS. [Concomitant]
     Active Substance: AZITHROMYCIN ANHYDROUS
     Dates: start: 2014
  5. FINASTERIDE. [Concomitant]
     Active Substance: FINASTERIDE
     Dosage: 5.0MG UNKNOWN
     Dates: start: 20160111
  6. CRESTOR [Suspect]
     Active Substance: ROSUVASTATIN CALCIUM
     Indication: BLOOD CHOLESTEROL INCREASED
     Route: 048
     Dates: start: 20091229
  7. OMEGA 3 [Concomitant]
     Active Substance: OMEGA-3 FATTY ACIDS
     Route: 065
  8. JANUMET [Concomitant]
     Active Substance: METFORMIN HYDROCHLORIDE\SITAGLIPTIN PHOSPHATE
     Dosage: 50-1000 MG
     Dates: start: 2014
  9. CYCLOBENZAPRINE [Concomitant]
     Active Substance: CYCLOBENZAPRINE
     Dosage: 10.0MG UNKNOWN
     Dates: start: 20100306
  10. ASPIRIN. [Concomitant]
     Active Substance: ASPIRIN
     Route: 065
  11. PLAVIX [Concomitant]
     Active Substance: CLOPIDOGREL BISULFATE
     Dosage: 75.0MG UNKNOWN
     Dates: start: 20080206
  12. CEPHALEXIN. [Concomitant]
     Active Substance: CEPHALEXIN
     Dosage: 500.0MG UNKNOWN
     Dates: start: 20060704
  13. METOPROLO TARTRATE [Concomitant]
     Indication: BLOOD PRESSURE MEASUREMENT
     Dosage: 25.0MG UNKNOWN
     Dates: start: 20080131
  14. SIMVASTATIN. [Concomitant]
     Active Substance: SIMVASTATIN
     Dates: start: 20080206
  15. PRILOSEC [Concomitant]
     Active Substance: OMEPRAZOLE MAGNESIUM
     Dosage: 20.0MG UNKNOWN
     Route: 048
     Dates: start: 20090304
  16. LISINOPRIL. [Concomitant]
     Active Substance: LISINOPRIL
     Route: 065
     Dates: start: 2014
  17. VITAMIN D [Concomitant]
     Active Substance: CHOLECALCIFEROL
  18. OFLOXACIN. [Concomitant]
     Active Substance: OFLOXACIN
  19. PREDNISONE. [Concomitant]
     Active Substance: PREDNISONE
     Dosage: 20.0MG UNKNOWN
     Dates: start: 2014
  20. TAMSULOSIN [Concomitant]
     Active Substance: TAMSULOSIN
     Dates: start: 20111130
  21. NITROQUICK/NITROSTAT/NITROGLYCERIN [Concomitant]
     Dosage: 4.0MG UNKNOWN
     Dates: start: 20080131
  22. OXYCODONE ACETAMINOPHEN [Concomitant]
     Active Substance: ACETAMINOPHEN\OXYCODONE HYDROCHLORIDE
  23. IBUPROFEN. [Concomitant]
     Active Substance: IBUPROFEN
     Dosage: 800.0MG UNKNOWN
     Dates: start: 20060704
  24. PENICILLIN VK [Concomitant]
     Active Substance: PENICILLIN V POTASSIUM
     Dosage: 500.0MG UNKNOWN
     Dates: start: 20101026
  25. DOCUSATE SODIUM. [Concomitant]
     Active Substance: DOCUSATE SODIUM
     Dosage: 100.0MG UNKNOWN
     Dates: start: 20100123
  26. CLINDAMYCIN HCL [Concomitant]
     Active Substance: CLINDAMYCIN HYDROCHLORIDE
     Dosage: 300.0MG UNKNOWN
     Dates: start: 20150309
  27. PANTOPRAZOLE SODIUM. [Concomitant]
     Active Substance: PANTOPRAZOLE SODIUM
     Dates: start: 20080318
  28. CALCIUM [Concomitant]
     Active Substance: CALCIUM
     Route: 065
  29. NIASPAN [Concomitant]
     Active Substance: NIACIN
     Dates: start: 2009, end: 2012
  30. CITALOPRAM [Concomitant]
     Active Substance: CITALOPRAM HYDROBROMIDE
     Dosage: 10.0MG UNKNOWN
     Dates: start: 20100629
  31. ALPRAZOLAM. [Concomitant]
     Active Substance: ALPRAZOLAM
     Dosage: 0.5MG UNKNOWN
     Dates: start: 20100629
  32. CRESTOR [Suspect]
     Active Substance: ROSUVASTATIN CALCIUM
     Indication: BLOOD CHOLESTEROL INCREASED
     Route: 048
     Dates: start: 200801, end: 20130830
  33. LIPITOR [Concomitant]
     Active Substance: ATORVASTATIN CALCIUM
     Dosage: 80.0MG UNKNOWN
     Dates: start: 20080131
  34. MECLIZINE [Concomitant]
     Active Substance: MECLIZINE HYDROCHLORIDE
     Dates: start: 20141205
  35. METFORMIN [Concomitant]
     Active Substance: METFORMIN HYDROCHLORIDE
     Dosage: 500.0MG UNKNOWN
     Dates: start: 20130610

REACTIONS (10)
  - Angina pectoris [Unknown]
  - Blood triglycerides increased [Not Recovered/Not Resolved]
  - Hypertension [Not Recovered/Not Resolved]
  - Coronary artery disease [Unknown]
  - Myocardial infarction [Unknown]
  - Diabetic nephropathy [Unknown]
  - Ischaemia [Unknown]
  - Type 2 diabetes mellitus [Not Recovered/Not Resolved]
  - Cerebrovascular accident [Unknown]
  - Obesity [Unknown]

NARRATIVE: CASE EVENT DATE: 2008
